FAERS Safety Report 9776841 (Version 1)
Quarter: 2013Q4

REPORT INFORMATION
  Report Type: Report from Study
  Country: IN (occurrence: IN)
  Receive Date: 20131221
  Receipt Date: 20131221
  Transmission Date: 20140711
  Serious: Yes (Death)
  Sender: FDA-Public Use
  Company Number: PHHY2013IN148262

PATIENT
  Age: 65 Year
  Sex: Female

DRUGS (1)
  1. AFINITOR [Suspect]
     Indication: PANCREATIC NEUROENDOCRINE TUMOUR
     Dosage: 10 MG, DAILY
     Route: 048

REACTIONS (2)
  - Haemoglobin decreased [Fatal]
  - Lower respiratory tract infection [Fatal]
